FAERS Safety Report 8877471 (Version 4)
Quarter: 2013Q2

REPORT INFORMATION
  Report Type: Spontaneous
  Country: JP (occurrence: JP)
  Receive Date: 20121024
  Receipt Date: 20130516
  Transmission Date: 20140414
  Serious: Yes (Hospitalization)
  Sender: FDA-Public Use
  Company Number: JP-VERTEX PHARMACEUTICAL INC.-AE-2012-006546

PATIENT
  Age: 48 Year
  Sex: Male

DRUGS (8)
  1. TELAVIC [Suspect]
     Indication: CHRONIC HEPATITIS C
     Dosage: 2250 MG, QD
     Route: 048
     Dates: start: 20120328, end: 20120424
  2. REBETOL [Suspect]
     Indication: CHRONIC HEPATITIS C
     Dosage: 1000 MG, QD
     Route: 048
     Dates: start: 20120328, end: 20120410
  3. REBETOL [Suspect]
     Dosage: 800 MG, QD
     Route: 048
     Dates: start: 20120411, end: 20120417
  4. REBETOL [Suspect]
     Dosage: 400 MG, QD
     Route: 048
     Dates: start: 20120418, end: 20120430
  5. PEGINTRON [Suspect]
     Indication: CHRONIC HEPATITIS C
     Dosage: 1.5 ?G/KG, QW
     Route: 058
     Dates: start: 20120328, end: 20120425
  6. TALION [Concomitant]
     Dosage: 20 MG, QD
     Route: 048
     Dates: start: 20120328, end: 20120424
  7. PARIET [Concomitant]
     Dosage: 10 MG, QD
     Route: 048
     Dates: start: 20120501, end: 20121030
  8. URSO [Concomitant]
     Dosage: 900 MG, QD
     Route: 048
     Dates: start: 20120530

REACTIONS (3)
  - Drug eruption [Recovered/Resolved]
  - Hyperuricaemia [Recovered/Resolved]
  - Haemoglobin decreased [Recovered/Resolved]
